FAERS Safety Report 4328751-8 (Version None)
Quarter: 2004Q1

REPORT INFORMATION
  Report Type: 
  Country: None (occurrence: None)
  Receive Date: 20040329
  Receipt Date: 20040109
  Transmission Date: 20041129
  Serious: No
  Sender: FDA-Public Use
  Company Number: 04P-163-0246697-00

PATIENT
  Age: 68 Year
  Sex: Female
  Weight: 90.7194 kg

DRUGS (13)
  1. HUMIRA [Suspect]
     Indication: RHEUMATOID ARTHRITIS
     Dosage: 40 MG, 1 IN 2 WK, SUBCUTANEOUS
     Route: 058
     Dates: start: 20030101
  2. INSULIN NORDISK MIXTARD (PORK) [Concomitant]
  3. INSULIN NORDISK MIXTARD (PORK) [Concomitant]
  4. ATENOLOL [Concomitant]
  5. LEVOTHYROXINE SODIUM [Concomitant]
  6. FUROSEMIDE [Concomitant]
  7. FOLIC ACID [Concomitant]
  8. LISINOPRIL [Concomitant]
  9. WARFARIN SODIUM [Concomitant]
  10. DIAZEPAM [Concomitant]
  11. TOCOPHEROL CONCENTRATE CAP [Concomitant]
  12. MULTIVITAMIN [Concomitant]
  13. HYDROCODONE [Concomitant]

REACTIONS (1)
  - INJECTION SITE PAIN [None]
